FAERS Safety Report 4877538-6 (Version None)
Quarter: 2006Q1

REPORT INFORMATION
  Report Type: 
  Country: None (occurrence: None)
  Receive Date: 20060111
  Receipt Date: 20051207
  Transmission Date: 20060701
  Serious: Yes (Other)
  Sender: FDA-Public Use
  Company Number: PHNU2005DE04082

PATIENT
  Sex: Male

DRUGS (4)
  1. LAMISIL [Suspect]
     Indication: ONYCHOMYCOSIS
     Dosage: 250 MG, QD
     Route: 048
     Dates: start: 20050728, end: 20051025
  2. LAMISIL [Suspect]
     Dosage: 250 MG, QD
     Route: 048
     Dates: start: 20051121
  3. BETASERON [Concomitant]
     Indication: MULTIPLE SCLEROSIS
  4. CORTISONE ACETATE TAB [Concomitant]
     Indication: MULTIPLE SCLEROSIS

REACTIONS (7)
  - CANDIDA SEROLOGY POSITIVE [None]
  - DERMATOPHYTOSIS [None]
  - DISEASE RECURRENCE [None]
  - FUNGUS SEROLOGY TEST POSITIVE [None]
  - ONYCHOMYCOSIS [None]
  - SYSTEMIC MYCOSIS [None]
  - THERAPEUTIC RESPONSE UNEXPECTED [None]
